FAERS Safety Report 20911398 (Version 2)
Quarter: 2022Q3

REPORT INFORMATION
  Report Type: Spontaneous
  Country: US (occurrence: US)
  Receive Date: 20220603
  Receipt Date: 20220921
  Transmission Date: 20221027
  Serious: Yes (Other)
  Sender: FDA-Public Use
  Company Number: US-PFIZER INC-202200790525

PATIENT
  Age: 54 Year
  Sex: Female

DRUGS (1)
  1. IBRANCE [Suspect]
     Active Substance: PALBOCICLIB
     Dosage: 125 MG
     Dates: end: 20220816

REACTIONS (5)
  - Hip arthroplasty [Unknown]
  - White blood cell count decreased [Unknown]
  - Dyspnoea [Unknown]
  - Bone disorder [Unknown]
  - Fall [Unknown]
